FAERS Safety Report 22620586 (Version 4)
Quarter: 2023Q4

REPORT INFORMATION
  Report Type: Report from Study
  Country: US (occurrence: US)
  Receive Date: 20230620
  Receipt Date: 20231025
  Transmission Date: 20240110
  Serious: Yes (Hospitalization, Other)
  Sender: FDA-Public Use
  Company Number: US-ABBVIE-5296767

PATIENT
  Sex: Female

DRUGS (3)
  1. HUMIRA [Suspect]
     Active Substance: ADALIMUMAB
     Indication: Hidradenitis
     Dosage: CITRATE FREE,?FORM STRENGTH: 40 MILLIGRAM
     Route: 058
     Dates: start: 20230606
  2. HUMIRA [Suspect]
     Active Substance: ADALIMUMAB
     Dosage: CITRATE FREE,?FORM STRENGTH: 40 MILLIGRAM
     Route: 058
  3. HUMIRA [Suspect]
     Active Substance: ADALIMUMAB
     Indication: Hidradenitis
     Dosage: LAST ADMIN DATE: 2023,?CITRATE FREE,?FORM STRENGTH: 40 MILLIGRAM
     Route: 058
     Dates: start: 20230206

REACTIONS (10)
  - Cystitis interstitial [Unknown]
  - Rotator cuff syndrome [Recovered/Resolved]
  - Intervertebral disc protrusion [Unknown]
  - Intervertebral disc degeneration [Not Recovered/Not Resolved]
  - Musculoskeletal pain [Unknown]
  - Bladder operation [Not Recovered/Not Resolved]
  - Pain [Unknown]
  - Spinal disorder [Unknown]
  - Muscle rupture [Not Recovered/Not Resolved]
  - Rotator cuff syndrome [Not Recovered/Not Resolved]

NARRATIVE: CASE EVENT DATE: 20230101
